FAERS Safety Report 13735667 (Version 1)
Quarter: 2017Q3

REPORT INFORMATION
  Report Type: Spontaneous
  Country: US (occurrence: US)
  Receive Date: 20170707
  Receipt Date: 20170707
  Transmission Date: 20171127
  Serious: No
  Sender: FDA-Public Use
  Company Number: None

PATIENT
  Age: 67 Year
  Sex: Male

DRUGS (2)
  1. CEFTRIAXONE. [Suspect]
     Active Substance: CEFTRIAXONE
     Indication: SKIN ULCER
     Dates: start: 20170308, end: 20170411
  2. CEFTRIAXONE. [Suspect]
     Active Substance: CEFTRIAXONE
     Indication: STAPHYLOCOCCAL BACTERAEMIA
     Dates: start: 20170308, end: 20170411

REACTIONS (2)
  - Hepatic enzyme abnormal [None]
  - Cholelithiasis [None]

NARRATIVE: CASE EVENT DATE: 20170420
